FAERS Safety Report 10973119 (Version 3)
Quarter: 2015Q3

REPORT INFORMATION
  Report Type: Spontaneous
  Country: IT (occurrence: IT)
  Receive Date: 20150401
  Receipt Date: 20150804
  Transmission Date: 20151125
  Serious: Yes (Hospitalization)
  Sender: FDA-Public Use
  Company Number: IT-009507513-1503ITA011832

PATIENT
  Age: 20 Year
  Sex: Female

DRUGS (11)
  1. TACHIPIRINA [Suspect]
     Active Substance: ACETAMINOPHEN
     Dosage: 5500 MG TOTAL
     Route: 048
     Dates: start: 20150223, end: 20150223
  2. MIRTAZAPINE. [Suspect]
     Active Substance: MIRTAZAPINE
     Dosage: ONE QUARTER TABLET, DAILY
     Route: 048
  3. ALPRAZOLAM. [Suspect]
     Active Substance: ALPRAZOLAM
     Indication: DEPRESSION
     Dosage: 1 MG, TOTAL
     Route: 048
     Dates: start: 20150223, end: 20150223
  4. ZOLOFT [Suspect]
     Active Substance: SERTRALINE HYDROCHLORIDE
     Indication: DEPRESSION
     Dosage: 50 MG, TOTAL
     Route: 048
     Dates: start: 20150223, end: 20150223
  5. TACHIPIRINA [Suspect]
     Active Substance: ACETAMINOPHEN
     Dosage: NORMAL DOSE
     Route: 048
     Dates: start: 2015
  6. ZOLOFT [Suspect]
     Active Substance: SERTRALINE HYDROCHLORIDE
     Dosage: HALF TABLET DAILY
     Route: 048
  7. MIRTAZAPINE. [Suspect]
     Active Substance: MIRTAZAPINE
     Dosage: ONE QUARTER TABLET, DAILY, NORMAL DOSE
     Route: 048
     Dates: start: 2015
  8. MIRTAZAPINE. [Suspect]
     Active Substance: MIRTAZAPINE
     Indication: DEPRESSION
     Dosage: 30 MG TOTAL
     Route: 048
     Dates: start: 20150223, end: 20150223
  9. ALPRAZOLAM. [Suspect]
     Active Substance: ALPRAZOLAM
     Dosage: ONE QUARTER TABLET, DAILY,NORMAL DOSE
     Route: 048
     Dates: start: 2015
  10. ALPRAZOLAM. [Suspect]
     Active Substance: ALPRAZOLAM
     Dosage: ONE QUARTER TABLET, DAILY
     Route: 048
  11. ZOLOFT [Suspect]
     Active Substance: SERTRALINE HYDROCHLORIDE
     Dosage: HALF TABLET DAILY, NORMAL DOSE
     Route: 048
     Dates: start: 2015

REACTIONS (2)
  - Drug abuse [Recovered/Resolved]
  - Sopor [Recovered/Resolved]

NARRATIVE: CASE EVENT DATE: 20150223
